FAERS Safety Report 21238190 (Version 1)
Quarter: 2022Q3

REPORT INFORMATION
  Report Type: Spontaneous
  Country: US (occurrence: US)
  Receive Date: 20220822
  Receipt Date: 20220822
  Transmission Date: 20221026
  Serious: Yes (Hospitalization, Other)
  Sender: FDA-Public Use
  Company Number: US-BRISTOL-MYERS SQUIBB COMPANY-2022-088657

PATIENT
  Age: 74 Year
  Sex: Male

DRUGS (1)
  1. REVLIMID [Suspect]
     Active Substance: LENALIDOMIDE
     Indication: Plasma cell myeloma
     Route: 048
     Dates: start: 20100222, end: 20220726

REACTIONS (9)
  - Tachycardia [Unknown]
  - Hypotension [Unknown]
  - Deep vein thrombosis [Unknown]
  - Cardiogenic shock [Unknown]
  - Pancytopenia [Unknown]
  - Ureteric stenosis [Unknown]
  - Haematuria [Unknown]
  - Acute left ventricular failure [Unknown]
  - Atrial flutter [Unknown]

NARRATIVE: CASE EVENT DATE: 20220726
